FAERS Safety Report 7716743-8 (Version None)
Quarter: 2011Q3

REPORT INFORMATION
  Report Type: 
  Country: None (occurrence: None)
  Receive Date: 20110829
  Receipt Date: 20110822
  Transmission Date: 20111222
  Serious: Yes (Hospitalization)
  Sender: FDA-Public Use
  Company Number: US-JNJFOC-20110707147

PATIENT
  Sex: Male
  Weight: 81.65 kg

DRUGS (2)
  1. REMICADE [Suspect]
     Indication: COLITIS ULCERATIVE
     Route: 042
     Dates: start: 20081001, end: 20090101
  2. REMICADE [Suspect]
     Indication: CROHN'S DISEASE
     Route: 042
     Dates: start: 20081001, end: 20090101

REACTIONS (5)
  - OEDEMA PERIPHERAL [None]
  - WEIGHT INCREASED [None]
  - NEPHROLITHIASIS [None]
  - GASTRIC CANCER [None]
  - GASTROINTESTINAL OBSTRUCTION [None]
